FAERS Safety Report 18223369 (Version 2)
Quarter: 2020Q3

REPORT INFORMATION
  Report Type: Spontaneous
  Country: FR (occurrence: FR)
  Receive Date: 20200902
  Receipt Date: 20200930
  Transmission Date: 20201103
  Serious: Yes (Death)
  Sender: FDA-Public Use
  Company Number: FR-009507513-2008FRA014732

PATIENT
  Age: 71 Year
  Sex: Male

DRUGS (5)
  1. TAMSULOSIN HYDROCHLORIDE. [Interacting]
     Active Substance: TAMSULOSIN HYDROCHLORIDE
     Route: 048
  2. MONTELUKAST SODIUM. [Suspect]
     Active Substance: MONTELUKAST SODIUM
     Route: 048
  3. LORAZEPAM. [Interacting]
     Active Substance: LORAZEPAM
     Route: 048
  4. ZOLPIDEM [Interacting]
     Active Substance: ZOLPIDEM TARTRATE
     Route: 048
  5. RUPATADINE FUMARATE [Interacting]
     Active Substance: RUPATADINE FUMARATE
     Indication: RHINITIS ALLERGIC
     Dosage: 1 DOSAGE FORM, DAY
     Route: 048
     Dates: start: 20200525, end: 20200528

REACTIONS (1)
  - Death [Fatal]

NARRATIVE: CASE EVENT DATE: 20200528
